FAERS Safety Report 14193487 (Version 1)
Quarter: 2017Q4

REPORT INFORMATION
  Report Type: Spontaneous
  Country: US (occurrence: US)
  Receive Date: 20171115
  Receipt Date: 20171115
  Transmission Date: 20180321
  Serious: No
  Sender: FDA-Public Use
  Company Number: US-BAUSCH-BL-2017-003596

PATIENT
  Sex: Female
  Weight: 138.47 kg

DRUGS (1)
  1. XENAZINE [Suspect]
     Active Substance: TETRABENAZINE
     Indication: TARDIVE DYSKINESIA
     Route: 065
     Dates: start: 201406

REACTIONS (4)
  - Off label use [Unknown]
  - Drug ineffective [Unknown]
  - Headache [Unknown]
  - Depression [Unknown]
